FAERS Safety Report 11624683 (Version 1)
Quarter: 2015Q4

REPORT INFORMATION
  Report Type: Spontaneous
  Country: US (occurrence: US)
  Receive Date: 20151013
  Receipt Date: 20151013
  Transmission Date: 20160304
  Serious: No
  Sender: FDA-Public Use
  Company Number: US-BIOGENIDEC-2015BI136117

PATIENT
  Sex: Female

DRUGS (1)
  1. TYSABRI [Suspect]
     Active Substance: NATALIZUMAB
     Indication: MULTIPLE SCLEROSIS
     Route: 042

REACTIONS (8)
  - Mobility decreased [Unknown]
  - Intentional product use issue [Unknown]
  - Malaise [Unknown]
  - Myalgia [Unknown]
  - Alopecia [Unknown]
  - Asthenia [Unknown]
  - Nausea [Unknown]
  - Multiple sclerosis relapse [Unknown]
